FAERS Safety Report 5822407-8 (Version None)
Quarter: 2008Q3

REPORT INFORMATION
  Report Type: 
  Country: None (occurrence: None)
  Receive Date: 20080725
  Receipt Date: 20080717
  Transmission Date: 20090109
  Serious: Yes (Other)
  Sender: FDA-Public Use
  Company Number: US-ROCHE-576197

PATIENT
  Age: 34 Year
  Sex: Male

DRUGS (8)
  1. VALCYTE [Suspect]
     Route: 065
     Dates: end: 20080501
  2. ENTECAVIR [Concomitant]
  3. FLUCONAZOLE [Concomitant]
  4. OMEPRAZOLE [Concomitant]
  5. TACROLIMUS [Concomitant]
  6. M.V.I. [Concomitant]
  7. URSODIOL [Concomitant]
  8. MAGNESIUM OXIDE [Concomitant]

REACTIONS (1)
  - EYE DISORDER [None]
